FAERS Safety Report 22138616 (Version 1)
Quarter: 2023Q1

REPORT INFORMATION
  Report Type: Report from Study
  Country: EG (occurrence: EG)
  Receive Date: 20230326
  Receipt Date: 20230326
  Transmission Date: 20230417
  Serious: Yes (Other)
  Sender: FDA-Public Use
  Company Number: EG-002147023-NVSC2023EG064348

PATIENT
  Sex: Female

DRUGS (8)
  1. KISQALI [Suspect]
     Active Substance: RIBOCICLIB
     Indication: Metastases to bone
     Dosage: 3 DOSAGE FORM, QD, (3 TABLETS ONCE PER DAY FOR 21 DAYS AND 1 WEEK FREE)
     Route: 065
     Dates: start: 20221121, end: 20230208
  2. KISQALI [Suspect]
     Active Substance: RIBOCICLIB
     Indication: Breast cancer metastatic
  3. CONVENTIN [Concomitant]
     Indication: Sciatica
     Dosage: 1 DOSAGE FORM, Q12H
     Route: 065
     Dates: start: 202107
  4. MYOFEN [Concomitant]
     Indication: Muscle relaxant therapy
     Dosage: 2 DOSAGE FORM, QD
     Route: 065
     Dates: start: 202107
  5. MYOFEN [Concomitant]
     Indication: Analgesic therapy
  6. FASLODEX [Concomitant]
     Active Substance: FULVESTRANT
     Indication: Product used for unknown indication
     Dosage: UNK
     Route: 065
  7. CALCIUM [Concomitant]
     Active Substance: CALCIUM
     Indication: Product used for unknown indication
     Route: 065
  8. VITAMIN D NOS [Concomitant]
     Active Substance: VITAMIN D NOS
     Indication: Product used for unknown indication
     Dosage: UNK
     Route: 065

REACTIONS (2)
  - Abdominal pain [Unknown]
  - Product availability issue [Unknown]
